FAERS Safety Report 11283383 (Version 1)
Quarter: 2015Q3

REPORT INFORMATION
  Report Type: Report from Study
  Country: DE (occurrence: CL)
  Receive Date: 20150720
  Receipt Date: 20150720
  Transmission Date: 20151125
  Serious: Yes (Other)
  Sender: FDA-Public Use
  Company Number: DE-ACTELION-A-NJ2015-121134

PATIENT
  Age: 33 Year
  Sex: Female

DRUGS (5)
  1. WARFARIN [Concomitant]
     Active Substance: WARFARIN
     Dosage: UNK
  2. VENTAVIS [Suspect]
     Active Substance: ILOPROST
     Indication: PULMONARY HYPERTENSION
     Dosage: 0.5 ML, 6/D
     Route: 055
     Dates: start: 20131205
  3. LORATADINE. [Concomitant]
     Active Substance: LORATADINE
     Dosage: UNK
  4. CONFER [Concomitant]
     Dosage: UNK
  5. SILDENAFIL. [Concomitant]
     Active Substance: SILDENAFIL
     Dosage: UNK

REACTIONS (2)
  - Metrorrhagia [Recovering/Resolving]
  - Pulmonary hypertension [Recovering/Resolving]

NARRATIVE: CASE EVENT DATE: 20150615
